FAERS Safety Report 5047203-3 (Version None)
Quarter: 2006Q3

REPORT INFORMATION
  Report Type: 
  Country: None (occurrence: None)
  Receive Date: 20060703
  Receipt Date: 20060622
  Transmission Date: 20061208
  Serious: Yes (Hospitalization)
  Sender: FDA-Public Use
  Company Number: 2006060197

PATIENT
  Age: 63 Year
  Sex: Female
  Weight: 58.2 kg

DRUGS (5)
  1. SUTENT [Suspect]
     Indication: GASTROINTESTINAL STROMAL TUMOUR
     Dosage: SEE IMAGE
     Route: 048
     Dates: start: 20060202, end: 20060301
  2. SUTENT [Suspect]
     Indication: GASTROINTESTINAL STROMAL TUMOUR
     Dosage: SEE IMAGE
     Route: 048
     Dates: start: 20060323, end: 20060419
  3. NEULASTA [Suspect]
     Indication: SINUSITIS
     Dosage: SUBCUTANEOUS
     Route: 058
     Dates: start: 20060503, end: 20060503
  4. NEVAQUIN (LEVOFLOXACIN) [Concomitant]
  5. NEXIUM [Concomitant]

REACTIONS (7)
  - HEADACHE [None]
  - MUSCLE CONTRACTIONS INVOLUNTARY [None]
  - MUSCLE SPASMS [None]
  - MUSCULOSKELETAL STIFFNESS [None]
  - MYALGIA [None]
  - SINUSITIS [None]
  - WHITE BLOOD CELL COUNT DECREASED [None]
